FAERS Safety Report 15243028 (Version 1)
Quarter: 2018Q3

REPORT INFORMATION
  Report Type: Other
  Country: DE (occurrence: DE)
  Receive Date: 20180806
  Receipt Date: 20180806
  Transmission Date: 20181010
  Serious: No
  Sender: FDA-Public Use
  Company Number: DE-LUPIN PHARMACEUTICALS INC.-2018-00155

PATIENT

DRUGS (2)
  1. LEVETIRACETAM. [Suspect]
     Active Substance: LEVETIRACETAM
     Indication: SEIZURE
     Dosage: 2000 MG, BID 2000 MG IN THE MORNING 2000MG IN THE EVENING
     Route: 065
  2. VIMPAT [Suspect]
     Active Substance: LACOSAMIDE
     Indication: SEIZURE
     Dosage: 200 MG, BID, 200 MG IN MORNING AND THE EVENINGS
     Route: 065

REACTIONS (6)
  - Intentional overdose [Unknown]
  - Memory impairment [Unknown]
  - Adverse drug reaction [Unknown]
  - Clumsiness [Unknown]
  - Daydreaming [Unknown]
  - Drug effect incomplete [Unknown]
